FAERS Safety Report 17089942 (Version 2)
Quarter: 2019Q4

REPORT INFORMATION
  Report Type: Spontaneous
  Country: DE (occurrence: DE)
  Receive Date: 20191129
  Receipt Date: 20191227
  Transmission Date: 20200122
  Serious: Yes (Hospitalization)
  Sender: FDA-Public Use
  Company Number: DE-US-PROVELL PHARMACEUTICALS LLC-E2B_90072729

PATIENT
  Age: 63 Year
  Sex: Female

DRUGS (1)
  1. EUTHYROX 88 NF [Suspect]
     Active Substance: LEVOTHYROXINE SODIUM
     Indication: THYROID DISORDER
     Dates: end: 20191114

REACTIONS (4)
  - Condition aggravated [Recovered/Resolved]
  - Diarrhoea [Recovering/Resolving]
  - Cellulitis [Recovered/Resolved]
  - Skin disorder [Unknown]

NARRATIVE: CASE EVENT DATE: 201906
